FAERS Safety Report 4973532-5 (Version None)
Quarter: 2006Q2

REPORT INFORMATION
  Report Type: 
  Country: None (occurrence: None)
  Receive Date: 20060407
  Receipt Date: 20060330
  Transmission Date: 20061013
  Serious: Yes (Other)
  Sender: FDA-Public Use
  Company Number: 2006-03-2139

PATIENT
  Age: 11 Year
  Sex: Female

DRUGS (3)
  1. AERIUS (DESLORATADINE) TABLETS [Suspect]
     Indication: RASH
     Dosage: 5 MG QD ORAL
     Route: 048
     Dates: start: 20060307, end: 20060316
  2. PROPYLENE GLYCOL CREAM [Concomitant]
  3. BETAPRED TABLETS [Concomitant]

REACTIONS (1)
  - ANGIONEUROTIC OEDEMA [None]
